FAERS Safety Report 26193018 (Version 1)
Quarter: 2025Q4

REPORT INFORMATION
  Report Type: Spontaneous
  Country: US (occurrence: None)
  Receive Date: 20251223
  Receipt Date: 20251223
  Transmission Date: 20260117
  Serious: Yes (Hospitalization)
  Sender: FDA-CTU
  Company Number: None

PATIENT
  Sex: Male

DRUGS (3)
  1. SIMLANDI [Suspect]
     Active Substance: ADALIMUMAB-RYVK
     Indication: Colitis ulcerative
     Dosage: OTHER FREQUENCY : EVERY 14 DAYS;
     Route: 058
     Dates: start: 20250116
  2. SIMLANDI [Suspect]
     Active Substance: ADALIMUMAB-RYVK
     Indication: Rectal haemorrhage
  3. PAROXETINE [Concomitant]
     Active Substance: PAROXETINE

REACTIONS (3)
  - Myositis [None]
  - Haematochezia [None]
  - Therapy interrupted [None]
